FAERS Safety Report 10069175 (Version 2)
Quarter: 2014Q2

REPORT INFORMATION
  Report Type: Spontaneous
  Country: US (occurrence: US)
  Receive Date: 20140409
  Receipt Date: 20140409
  Transmission Date: 20141212
  Serious: No
  Sender: FDA-Public Use
  Company Number: US-ASTELLAS-2013US008897

PATIENT
  Age: 40 Year
  Sex: Female

DRUGS (3)
  1. PROTOPIC [Suspect]
     Indication: VITILIGO
     Dosage: UNK
     Route: 061
     Dates: start: 201303, end: 201309
  2. ALCOHOL [Suspect]
     Indication: PRODUCT USED FOR UNKNOWN INDICATION
     Dosage: UNK
     Route: 065
  3. LEVOTHYROXIN [Concomitant]
     Indication: HYPOTHYROIDISM
     Dosage: UNK
     Route: 065

REACTIONS (2)
  - Off label use [Unknown]
  - Flushing [Recovered/Resolved]
